FAERS Safety Report 6618042-4 (Version None)
Quarter: 2010Q1

REPORT INFORMATION
  Report Type: 
  Country: None (occurrence: None)
  Receive Date: 20100302
  Receipt Date: 20100223
  Transmission Date: 20100710
  Serious: Yes (Life-Threatening)
  Sender: FDA-Public Use
  Company Number: 2010SP011455

PATIENT
  Age: 24 Year
  Sex: Female
  Weight: 74 kg

DRUGS (2)
  1. IMPLANON [Suspect]
     Indication: CONTRACEPTION
     Dosage: SBDE
     Route: 059
     Dates: start: 20091116, end: 20100202
  2. FOLIC ACID [Concomitant]

REACTIONS (5)
  - BLOOD PRESSURE DECREASED [None]
  - GENERALISED OEDEMA [None]
  - SYNCOPE [None]
  - VAGINAL HAEMORRHAGE [None]
  - WEIGHT INCREASED [None]
